FAERS Safety Report 20855855 (Version 1)
Quarter: 2022Q2

REPORT INFORMATION
  Report Type: Spontaneous
  Country: US (occurrence: US)
  Receive Date: 20220520
  Receipt Date: 20220520
  Transmission Date: 20220721
  Serious: No
  Sender: FDA-Public Use
  Company Number: US-PFIZER INC-202200734904

PATIENT
  Age: 68 Year
  Sex: Female
  Weight: 99.79 kg

DRUGS (2)
  1. QUINAPRIL [Suspect]
     Active Substance: QUINAPRIL
     Indication: Hypertension
     Dosage: UNK
  2. ACCUPRIL [Suspect]
     Active Substance: QUINAPRIL HYDROCHLORIDE
     Indication: Hypertension
     Dosage: UNK

REACTIONS (5)
  - Drug ineffective [Unknown]
  - Wrong product administered [Unknown]
  - Blood pressure increased [Unknown]
  - Heart rate increased [Unknown]
  - Somnolence [Unknown]
